FAERS Safety Report 7913329-7 (Version None)
Quarter: 2011Q4

REPORT INFORMATION
  Report Type: 
  Country: None (occurrence: None)
  Receive Date: 20111114
  Receipt Date: 20111105
  Transmission Date: 20120403
  Serious: Yes (Hospitalization)
  Sender: FDA-Public Use
  Company Number: US-AMGEN-USASP2011058061

PATIENT
  Sex: Male

DRUGS (4)
  1. SENSIPAR [Suspect]
     Indication: HYPERPARATHYROIDISM SECONDARY
     Dosage: 90 MG, QD
  2. IRON [Concomitant]
  3. PHOSPHATE                          /01053101/ [Concomitant]
  4. BICARBONATE [Concomitant]

REACTIONS (2)
  - NERVOUSNESS [None]
  - RESPIRATORY FAILURE [None]
